FAERS Safety Report 5466854-5 (Version None)
Quarter: 2007Q3

REPORT INFORMATION
  Report Type: 
  Country: None (occurrence: None)
  Receive Date: 20070925
  Receipt Date: 20070916
  Transmission Date: 20080115
  Serious: Yes (Life-Threatening)
  Sender: FDA-Public Use
  Company Number: JO-AVENTIS-200718501GDDC

PATIENT
  Age: 7 Month
  Sex: Male

DRUGS (1)
  1. FLAGYL [Suspect]
     Indication: GASTROENTERITIS
     Dosage: DOSE: 1.5CC OF 250 MG/5 ML
     Route: 042
     Dates: start: 20070916, end: 20070916

REACTIONS (4)
  - DISSEMINATED INTRAVASCULAR COAGULATION [None]
  - INCORRECT ROUTE OF DRUG ADMINISTRATION [None]
  - RESPIRATORY FAILURE [None]
  - TOXIC SHOCK SYNDROME [None]
